FAERS Safety Report 18780395 (Version 1)
Quarter: 2021Q1

REPORT INFORMATION
  Report Type: Spontaneous
  Country: US (occurrence: US)
  Receive Date: 20210125
  Receipt Date: 20210125
  Transmission Date: 20210419
  Serious: No
  Sender: FDA-Public Use
  Company Number: US-TAKEDA-2021TUS004364

PATIENT
  Sex: Female
  Weight: 66 kg

DRUGS (2)
  1. LEVOTHYROXINE. [Concomitant]
     Active Substance: LEVOTHYROXINE
     Indication: HYPOTHYROIDISM
     Dosage: 20 MILLIGRAM, QD
     Route: 065
     Dates: start: 202001
  2. TRINTELLIX [Suspect]
     Active Substance: VORTIOXETINE HYDROBROMIDE
     Indication: ANXIETY
     Dosage: 20 MILLIGRAM, QD
     Route: 048
     Dates: start: 202001

REACTIONS (2)
  - Product use in unapproved indication [Unknown]
  - Abdominal pain upper [Unknown]
